FAERS Safety Report 6694680-8 (Version None)
Quarter: 2010Q2

REPORT INFORMATION
  Report Type: 
  Country: None (occurrence: None)
  Receive Date: 20100423
  Receipt Date: 20100414
  Transmission Date: 20101027
  Serious: Yes (Hospitalization)
  Sender: FDA-Public Use
  Company Number: US-ELI_LILLY_AND_COMPANY-US201004004298

PATIENT
  Sex: Female
  Weight: 97.506 kg

DRUGS (8)
  1. BYETTA [Suspect]
     Indication: TYPE 2 DIABETES MELLITUS
     Dosage: 5 UG, 2/D
     Route: 058
  2. BYETTA [Suspect]
     Dosage: 10 UG, 2/D
     Route: 058
  3. METFORMIN [Concomitant]
     Dosage: 1000 MG, 2/D
  4. NORVASC [Concomitant]
     Indication: HYPERTENSION
     Dosage: 1.25 MG, DAILY (1/D)
  5. BENICAR [Concomitant]
     Indication: HYPERTENSION
     Dosage: 20 MG, UNK
  6. LIPITOR [Concomitant]
     Indication: BLOOD CHOLESTEROL
     Dosage: 20 MG, DAILY (1/D)
  7. TOPROL-XL [Concomitant]
     Indication: HYPERTENSION
     Dosage: 50 MG, DAILY (1/D)
  8. HYDROCHLOROTHIAZIDE [Concomitant]
     Indication: HYPERTENSION
     Dosage: 5 MG, DAILY (1/D)

REACTIONS (6)
  - ASTHENIA [None]
  - BACK PAIN [None]
  - BLOOD THYROID STIMULATING HORMONE INCREASED [None]
  - CHEST PAIN [None]
  - CONFUSIONAL STATE [None]
  - DIZZINESS [None]
